FAERS Safety Report 16118523 (Version 1)
Quarter: 2019Q1

REPORT INFORMATION
  Report Type: Spontaneous
  Country: US (occurrence: US)
  Receive Date: 20190326
  Receipt Date: 20190326
  Transmission Date: 20190418
  Serious: No
  Sender: FDA-Public Use
  Company Number: US-VERTEX PHARMACEUTICALS-2019-002462

PATIENT
  Sex: Female

DRUGS (8)
  1. KALYDECO [Suspect]
     Active Substance: IVACAFTOR
     Indication: CYSTIC FIBROSIS
     Dosage: 150 MG, BID
     Route: 048
     Dates: start: 20180828
  2. ALBUTEROL                          /00139501/ [Concomitant]
     Active Substance: ALBUTEROL
  3. POLYETHYLENE GLYCOL [Concomitant]
     Active Substance: POLYETHYLENE GLYCOLS
  4. AMOXICILLIN/CLAV POT [Concomitant]
  5. AMOXICILINA                        /00249601/ [Concomitant]
     Active Substance: AMOXICILLIN
  6. OSELTAMIVIR [Concomitant]
     Active Substance: OSELTAMIVIR
  7. URSODIOL. [Concomitant]
     Active Substance: URSODIOL
  8. SODIUM CHLORIDE. [Concomitant]
     Active Substance: SODIUM CHLORIDE

REACTIONS (1)
  - Abdominal pain upper [Not Recovered/Not Resolved]
